FAERS Safety Report 11309530 (Version 3)
Quarter: 2016Q2

REPORT INFORMATION
  Report Type: Spontaneous
  Country: RU (occurrence: RU)
  Receive Date: 20150724
  Receipt Date: 20160425
  Transmission Date: 20160815
  Serious: Yes (Other)
  Sender: FDA-Public Use
  Company Number: RU-BAYER-2015-382547

PATIENT
  Age: 36 Year
  Sex: Female

DRUGS (1)
  1. QLAIRA [Suspect]
     Active Substance: DIENOGEST\ESTRADIOL VALERATE
     Indication: CONTRACEPTION
     Dosage: 1 DF, QD
     Route: 048
     Dates: start: 2015

REACTIONS (4)
  - Amenorrhoea [None]
  - Abortion threatened [None]
  - Pregnancy on oral contraceptive [None]
  - Drug ineffective [None]

NARRATIVE: CASE EVENT DATE: 2015
